FAERS Safety Report 4284356-9 (Version None)
Quarter: 2004Q1

REPORT INFORMATION
  Report Type: 
  Country: None (occurrence: None)
  Receive Date: 20040130
  Receipt Date: 20040130
  Transmission Date: 20041129
  Serious: Yes (Hospitalization)
  Sender: FDA-Public Use
  Company Number: None

PATIENT
  Age: 53 Year
  Sex: Male

DRUGS (3)
  1. ASPIRIN [Suspect]
     Indication: PAIN
  2. ALEVE [Suspect]
  3. BC [Suspect]

REACTIONS (7)
  - ABNORMAL FAECES [None]
  - ALCOHOL USE [None]
  - FALL [None]
  - HAEMORRHAGE [None]
  - MASS [None]
  - SINUS DISORDER [None]
  - SYNCOPE [None]
